FAERS Safety Report 7769479-1 (Version None)
Quarter: 2011Q3

REPORT INFORMATION
  Report Type: 
  Country: None (occurrence: None)
  Receive Date: 20110922
  Receipt Date: 20101222
  Transmission Date: 20111222
  Serious: No
  Sender: FDA-Public Use
  Company Number: US-ASTRAZENECA-2010SE60383

PATIENT
  Age: 30 Year
  Sex: Female
  Weight: 67.1 kg

DRUGS (3)
  1. CLONAZEPAM [Concomitant]
  2. LEXAPRO [Concomitant]
  3. SEROQUEL XR [Suspect]
     Indication: BIPOLAR DISORDER
     Route: 048
     Dates: start: 20070101, end: 20101201

REACTIONS (5)
  - DISTURBANCE IN ATTENTION [None]
  - DRUG DOSE OMISSION [None]
  - HEADACHE [None]
  - MOOD SWINGS [None]
  - AGGRESSION [None]
